FAERS Safety Report 5568328-X (Version None)
Quarter: 2007Q4

REPORT INFORMATION
  Report Type: 
  Country: None (occurrence: None)
  Receive Date: 20071218
  Receipt Date: 20071205
  Transmission Date: 20080405
  Serious: Yes (Death, Other)
  Sender: FDA-Public Use
  Company Number: 07-002158

PATIENT

DRUGS (1)
  1. FEMCON FE [Suspect]
     Indication: CONTRACEPTION
     Dosage: 0.4 MG/35MCG, QD, TRANSPLACENTAL
     Route: 064
     Dates: start: 20070901, end: 20070101

REACTIONS (3)
  - ABORTION SPONTANEOUS [None]
  - DRUG EXPOSURE DURING PREGNANCY [None]
  - PREGNANCY ON ORAL CONTRACEPTIVE [None]
